FAERS Safety Report 14633917 (Version 1)
Quarter: 2018Q1

REPORT INFORMATION
  Report Type: Spontaneous
  Country: US (occurrence: US)
  Receive Date: 20180314
  Receipt Date: 20180314
  Transmission Date: 20180509
  Serious: No
  Sender: FDA-Public Use
  Company Number: US-BRISTOL-MYERS SQUIBB COMPANY-BMS-2018-023802

PATIENT
  Age: 57 Year
  Sex: Female
  Weight: 117.9 kg

DRUGS (1)
  1. ELIQUIS [Suspect]
     Active Substance: APIXABAN
     Indication: CEREBROVASCULAR ACCIDENT PROPHYLAXIS
     Dosage: 5 MG, BID
     Route: 048
     Dates: start: 20180109, end: 20180110

REACTIONS (7)
  - Headache [Recovered/Resolved]
  - Vision blurred [Unknown]
  - Musculoskeletal pain [Recovered/Resolved]
  - Gait disturbance [Unknown]
  - Neck pain [Recovered/Resolved]
  - Erythema [Recovered/Resolved]
  - Chills [Recovered/Resolved]

NARRATIVE: CASE EVENT DATE: 20180109
